FAERS Safety Report 18579774 (Version 1)
Quarter: 2020Q4

REPORT INFORMATION
  Report Type: Spontaneous
  Country: ES (occurrence: ES)
  Receive Date: 20201204
  Receipt Date: 20201204
  Transmission Date: 20210114
  Serious: Yes (Other)
  Sender: FDA-Public Use
  Company Number: ES-PFIZER INC-2020476031

PATIENT
  Age: 52 Year
  Sex: Female

DRUGS (2)
  1. PREDNISONA [Suspect]
     Active Substance: PREDNISONE
     Indication: RHEUMATOID ARTHRITIS
     Dosage: 30 MG/DAY
     Dates: start: 20200831
  2. RITUXIMAB. [Suspect]
     Active Substance: RITUXIMAB
     Indication: RHEUMATOID ARTHRITIS
     Dosage: 1 G
     Dates: start: 20200831

REACTIONS (5)
  - Erythema [Unknown]
  - Dizziness [Unknown]
  - Hypotension [Unknown]
  - Pruritus [Unknown]
  - Jaundice [Unknown]

NARRATIVE: CASE EVENT DATE: 20201006
